FAERS Safety Report 10057405 (Version 2)
Quarter: 2014Q2

REPORT INFORMATION
  Report Type: Report from Study
  Country: US (occurrence: US)
  Receive Date: 20140403
  Receipt Date: 20140602
  Transmission Date: 20141212
  Serious: Yes (Hospitalization, Other)
  Sender: FDA-Public Use
  Company Number: US-ABBVIE-14P-163-1216982-00

PATIENT
  Age: 23 Year
  Sex: Male
  Weight: 67.19 kg

DRUGS (3)
  1. HUMIRA [Suspect]
     Indication: CROHN^S DISEASE
     Dates: start: 20140207, end: 20140207
  2. HUMIRA [Suspect]
     Dates: start: 20140221, end: 20140221
  3. HUMIRA [Suspect]
     Dates: start: 20140326

REACTIONS (7)
  - Intestinal obstruction [Unknown]
  - Abdominal abscess [Recovered/Resolved]
  - Crohn^s disease [Recovered/Resolved]
  - Abdominal pain upper [Recovering/Resolving]
  - Arthralgia [Recovered/Resolved]
  - Anaemia [Recovering/Resolving]
  - Inflammation [Recovering/Resolving]
